FAERS Safety Report 9505651 (Version 1)
Quarter: 2013Q1

REPORT INFORMATION
  Report Type: Spontaneous
  Country: US (occurrence: None)
  Receive Date: 20130220
  Receipt Date: 20130220
  Transmission Date: 20140127
  Serious: No
  Sender: FDA-Public Use
  Company Number: 1000041139

PATIENT
  Age: 36 Year
  Sex: Female

DRUGS (3)
  1. VIIBRYD [Suspect]
     Indication: DEPRESSION
     Route: 048
     Dates: start: 20121127, end: 20121202
  2. WELLBITRIN (BUPROPION HYDROCHLORIDE) (BUPROPION HYDROCHLORIDE) [Concomitant]
  3. BIRTH CONTROL PILL NOS (BIRTH CONTROL PILL NOS) (BIRTH CONTROL PILL NOS) [Concomitant]

REACTIONS (1)
  - Rash maculo-papular [None]
